FAERS Safety Report 9969159 (Version 1)
Quarter: 2014Q1

REPORT INFORMATION
  Report Type: Spontaneous
  Country: US (occurrence: US)
  Receive Date: 20140306
  Receipt Date: 20140306
  Transmission Date: 20141002
  Serious: Yes (Other)
  Sender: FDA-Public Use
  Company Number: US-BIOGENIDEC-2014BI020347

PATIENT
  Age: 37 Year
  Sex: Female
  Weight: 94 kg

DRUGS (10)
  1. AVONEX [Suspect]
     Indication: MULTIPLE SCLEROSIS
     Route: 030
     Dates: start: 20040716
  2. ZOLOFT [Concomitant]
     Route: 048
  3. AMLODIPINE [Concomitant]
     Route: 048
  4. ATENOLOL [Concomitant]
     Route: 048
  5. NEXIUM [Concomitant]
     Route: 048
  6. VIIBRYD [Concomitant]
     Route: 048
  7. POTASSIUM GLUCONATE [Concomitant]
  8. COPAXONE [Concomitant]
  9. NUVIGIL [Concomitant]
     Indication: FATIGUE
  10. NUVIGIL [Concomitant]
     Indication: MALAISE

REACTIONS (18)
  - Female sterilisation [Recovered/Resolved]
  - Hysterectomy [Recovered/Resolved]
  - Tonsillectomy [Recovered/Resolved]
  - Cholecystectomy [Recovered/Resolved]
  - Increased tendency to bruise [Unknown]
  - Seasonal allergy [Unknown]
  - Vitamin D deficiency [Unknown]
  - Vitamin B12 deficiency [Unknown]
  - Migraine [Unknown]
  - Diabetes mellitus [Unknown]
  - Hypertension [Unknown]
  - Hypercholesterolaemia [Unknown]
  - Barrett^s oesophagus [Unknown]
  - Stress [Unknown]
  - Blood pressure increased [Unknown]
  - Injection site reaction [Unknown]
  - Anxiety [Not Recovered/Not Resolved]
  - Depression [Unknown]
